FAERS Safety Report 13751055 (Version 1)
Quarter: 2017Q3

REPORT INFORMATION
  Report Type: Spontaneous
  Country: US (occurrence: US)
  Receive Date: 20170713
  Receipt Date: 20170713
  Transmission Date: 20171127
  Serious: No
  Sender: FDA-Public Use
  Company Number: US-SHIRE-US201714311

PATIENT
  Age: 69 Year
  Sex: Female
  Weight: 58.96 kg

DRUGS (5)
  1. RANITIDINE. [Concomitant]
     Active Substance: RANITIDINE
     Indication: GASTROOESOPHAGEAL REFLUX DISEASE
     Dosage: 150 MG, 2X/DAY:BID
     Route: 048
  2. KETOCONAZOLE. [Concomitant]
     Active Substance: KETOCONAZOLE
     Indication: DERMATITIS
     Dosage: ONCE OR TWICE A WEEK
     Route: 061
  3. SPIROLACTONE [Concomitant]
     Active Substance: SPIRONOLACTONE
     Indication: ALOPECIA
     Dosage: 50 MG, 2X/DAY:BID
     Route: 048
  4. XIIDRA [Suspect]
     Active Substance: LIFITEGRAST
     Indication: DRY EYE
     Dosage: 1 GTT, 2X/DAY:BID
     Route: 047
     Dates: start: 20170604
  5. NASALCROM [Concomitant]
     Active Substance: CROMOLYN SODIUM
     Indication: HYPERSENSITIVITY
     Dosage: 1 SPRAY EACH NOSTRIL AS NEEDED
     Route: 045

REACTIONS (1)
  - Instillation site pain [Not Recovered/Not Resolved]

NARRATIVE: CASE EVENT DATE: 20170604
